FAERS Safety Report 7959607-7 (Version None)
Quarter: 2011Q4

REPORT INFORMATION
  Report Type: 
  Country: None (occurrence: None)
  Receive Date: 20111206
  Receipt Date: 20111124
  Transmission Date: 20120403
  Serious: Yes (Other)
  Sender: FDA-Public Use
  Company Number: CA-JNJFOC-20111202057

PATIENT
  Sex: Female
  Weight: 82.1 kg

DRUGS (6)
  1. NUVARING [Concomitant]
  2. TYLENOL-500 [Concomitant]
  3. METHOTREXATE [Concomitant]
     Route: 048
     Dates: start: 20111021, end: 20111028
  4. REMICADE [Suspect]
     Indication: CROHN'S DISEASE
     Route: 042
     Dates: start: 20080801
  5. MULTI-VITAMINS [Concomitant]
  6. LOVAZA [Concomitant]

REACTIONS (2)
  - GALLBLADDER DISORDER [None]
  - EAR PAIN [None]
